FAERS Safety Report 16080176 (Version 13)
Quarter: 2020Q2

REPORT INFORMATION
  Report Type: Report from Study
  Country: TW (occurrence: TW)
  Receive Date: 20190315
  Receipt Date: 20200429
  Transmission Date: 20200713
  Serious: Yes (Hospitalization, Other)
  Sender: FDA-Public Use
  Company Number: PHHY2018TW100915

PATIENT
  Age: 60 Year
  Sex: Female
  Weight: 58.3 kg

DRUGS (30)
  1. DEXCHLORPHENIRAMINE [Concomitant]
     Active Substance: DEXCHLORPHENIRAMINE
     Indication: BRONCHITIS
     Dosage: 2 OT, UNK
     Route: 048
     Dates: start: 20181016, end: 20181019
  2. ULTRACET [Concomitant]
     Active Substance: ACETAMINOPHEN\TRAMADOL HYDROCHLORIDE
     Indication: METASTASES TO LUNG
     Dosage: 1 OT, UNK
     Route: 048
     Dates: start: 20180906, end: 20180924
  3. CEFUROXIME. [Concomitant]
     Active Substance: CEFUROXIME
     Indication: PROPHYLAXIS
     Dosage: 500 OT, UNK
     Route: 048
     Dates: start: 20181016, end: 20181019
  4. MEDICON [Concomitant]
     Active Substance: DEXTROMETHORPHAN HYDROBROMIDE
     Indication: COUGH
     Dosage: 1 DF, UNK
     Route: 065
     Dates: start: 20180829
  5. ACETYLCYSTEINE. [Concomitant]
     Active Substance: ACETYLCYSTEINE
     Indication: METASTASES TO LUNG
     Dosage: 66.7 OT, UNK
     Route: 048
     Dates: start: 20180920, end: 20181018
  6. SPIRONOLACTONE. [Concomitant]
     Active Substance: SPIRONOLACTONE
     Indication: HYPERTENSION
     Dosage: 25 MG, UNK
     Route: 048
     Dates: start: 20190401
  7. LORAZEPAM. [Concomitant]
     Active Substance: LORAZEPAM
     Indication: PROPHYLAXIS
     Dosage: 1 OT, UNK
     Route: 048
     Dates: start: 20181016
  8. ACETYLCYSTEINE. [Concomitant]
     Active Substance: ACETYLCYSTEINE
     Indication: BRONCHITIS
     Dosage: 66.7 UNK, UNK
     Route: 065
     Dates: start: 20181017
  9. AMLODIPINE [Concomitant]
     Active Substance: AMLODIPINE BESYLATE
     Indication: HYPERTENSION
     Dosage: 5 OT, UNK
     Route: 048
     Dates: start: 20180907, end: 20180924
  10. TAZOCIN [Concomitant]
     Active Substance: PIPERACILLIN SODIUM\TAZOBACTAM SODIUM
     Indication: PNEUMONIA
     Dosage: 2250 OT, UNK
     Route: 042
     Dates: start: 20181210, end: 20181217
  11. CEFAZOLIN [Concomitant]
     Active Substance: CEFAZOLIN
     Indication: PNEUMONIA
     Dosage: 1000 OT, UNK
     Route: 042
     Dates: start: 20181219, end: 20181219
  12. ALDACTONE A [Concomitant]
     Active Substance: SPIRONOLACTONE
     Indication: HYPERTENSION
     Dosage: 1 DF, UNK
     Route: 048
     Dates: start: 20190527
  13. VOTRIENT [Suspect]
     Active Substance: PAZOPANIB HYDROCHLORIDE
     Indication: RENAL CELL CARCINOMA
     Dosage: 800 MG, QD
     Route: 048
     Dates: start: 20180813, end: 20180827
  14. CHLORPHENAMINE [Concomitant]
     Active Substance: CHLORPHENIRAMINE MALEATE
     Indication: OVERDOSE
     Dosage: UNK
     Route: 042
     Dates: start: 20180906, end: 20180907
  15. DEXTROMETHORPHAN [Concomitant]
     Active Substance: DEXTROMETHORPHAN
     Indication: BRONCHITIS
     Dosage: 30 OT, UNK
     Route: 048
     Dates: start: 20181016, end: 20181019
  16. MEGEST [Concomitant]
     Indication: METASTASES TO LUNG
     Dosage: 40 MG/ML, 10 OT, UNK
     Route: 048
     Dates: start: 20180920
  17. DOXAZOSIN [Concomitant]
     Active Substance: DOXAZOSIN MESYLATE
     Dosage: 4 UNK, UNK
     Route: 048
     Dates: start: 20181115, end: 20181122
  18. AMLODIPINE [Concomitant]
     Active Substance: AMLODIPINE BESYLATE
     Dosage: 5 OT, UNK
     Route: 048
     Dates: start: 20181115
  19. LASIX [Concomitant]
     Active Substance: FUROSEMIDE
     Indication: HYPERTENSION
     Dosage: 40 MG, UNK
     Route: 048
     Dates: start: 20190227
  20. BIOMYCIN [Concomitant]
     Indication: INFECTION PROPHYLAXIS
     Dosage: 1 OT, UNK
     Route: 061
     Dates: start: 20181221
  21. NEOMYCIN. [Concomitant]
     Active Substance: NEOMYCIN
     Indication: PROPHYLAXIS
     Dosage: 1 DF, UNK
     Route: 061
     Dates: start: 20181224
  22. VOTRIENT [Suspect]
     Active Substance: PAZOPANIB HYDROCHLORIDE
     Dosage: 800 MG
     Route: 048
     Dates: start: 20180912, end: 20181212
  23. VOTRIENT [Suspect]
     Active Substance: PAZOPANIB HYDROCHLORIDE
     Dosage: 800 MG
     Route: 048
     Dates: start: 20181225
  24. ACETAMINOPHEN. [Concomitant]
     Active Substance: ACETAMINOPHEN
     Indication: PROPHYLAXIS
     Dosage: 500 OT, UNK
     Route: 048
     Dates: start: 20181017, end: 20181031
  25. TRACETON [Concomitant]
     Indication: METASTASES TO LUNG
     Dosage: 1 DF, 37.5MG/325MG
     Route: 048
     Dates: start: 20181016, end: 20181019
  26. DOXAZOSIN [Concomitant]
     Active Substance: DOXAZOSIN MESYLATE
     Indication: HYPERTENSION
     Dosage: 4 OT, UNK
     Route: 048
     Dates: start: 20181017, end: 20181114
  27. HYZAAR [Concomitant]
     Active Substance: HYDROCHLOROTHIAZIDE\LOSARTAN POTASSIUM
     Indication: HYPERTENSION
     Dosage: 1 OT, UNK
     Route: 048
     Dates: start: 20181016
  28. DOPHILIN [Concomitant]
     Indication: HYPERTENSION
     Dosage: 2 OT, UNK
     Route: 048
     Dates: start: 20180920, end: 20181018
  29. ACETAMINOPHEN. [Concomitant]
     Active Substance: ACETAMINOPHEN
     Dosage: 500 OT, UNK
     Route: 048
     Dates: start: 20181115
  30. KENTAMIN [Concomitant]
     Indication: MALNUTRITION
     Dosage: 1 OT, UNK
     Route: 048
     Dates: start: 20181224, end: 20190101

REACTIONS (10)
  - Pyrexia [Recovered/Resolved]
  - Hyponatraemia [Recovered/Resolved]
  - Productive cough [Recovered/Resolved]
  - Hypokalaemia [Recovered/Resolved]
  - Enteritis [Recovered/Resolved]
  - Acute sinusitis [Recovered/Resolved]
  - Chronic obstructive pulmonary disease [Not Recovered/Not Resolved]
  - Diarrhoea [Recovered/Resolved]
  - Hypertriglyceridaemia [Recovered/Resolved]
  - Haemoptysis [Recovered/Resolved]

NARRATIVE: CASE EVENT DATE: 20180827
